FAERS Safety Report 13221859 (Version 2)
Quarter: 2017Q1

REPORT INFORMATION
  Report Type: Spontaneous
  Country: US (occurrence: BR)
  Receive Date: 20170211
  Receipt Date: 20170327
  Transmission Date: 20170428
  Serious: Yes (Hospitalization, Other)
  Sender: FDA-Public Use
  Company Number: US-SUNOVION-2017SUN000588

PATIENT
  Sex: Male
  Weight: 96 kg

DRUGS (3)
  1. INDACATEROL [Suspect]
     Active Substance: INDACATEROL
     Indication: EMPHYSEMA
     Dosage: 150 ?G, BID
     Route: 055
  2. INDACATEROL [Suspect]
     Active Substance: INDACATEROL
     Indication: INFECTIOUS PLEURAL EFFUSION
  3. CLONAZEPAM. [Concomitant]
     Active Substance: CLONAZEPAM
     Dosage: UNK

REACTIONS (10)
  - Cataract [Unknown]
  - Abnormal behaviour [Unknown]
  - Malaise [Unknown]
  - Oesophageal pain [Unknown]
  - Product use issue [Unknown]
  - Blindness unilateral [Unknown]
  - Nervousness [Unknown]
  - Vomiting [Unknown]
  - Agitation [Unknown]
  - Retching [Unknown]
